FAERS Safety Report 4454250-9 (Version None)
Quarter: 2004Q3

REPORT INFORMATION
  Report Type: 
  Country: None (occurrence: None)
  Receive Date: 20040826
  Receipt Date: 20040608
  Transmission Date: 20050211
  Serious: No
  Sender: FDA-Public Use
  Company Number: WAES 0406USA00946

PATIENT
  Age: 55 Year
  Sex: Female
  Weight: 71.6683 kg

DRUGS (6)
  1. ZETIA [Suspect]
     Indication: HYPERLIPIDAEMIA
     Dosage: 10 MG/DAILY/PO
     Route: 048
     Dates: start: 20030916, end: 20040316
  2. DIOVAN HCT [Concomitant]
  3. ESTRACE [Concomitant]
  4. NEXIUM [Concomitant]
  5. VIOXX [Concomitant]
  6. THERAPY UNSPECIFIED [Concomitant]

REACTIONS (1)
  - IRON DEFICIENCY ANAEMIA [None]
